FAERS Safety Report 11044107 (Version 1)
Quarter: 2015Q2

REPORT INFORMATION
  Report Type: Spontaneous
  Country: US (occurrence: US)
  Receive Date: 20150417
  Receipt Date: 20150417
  Transmission Date: 20150821
  Serious: Yes (Hospitalization, Other)
  Sender: FDA-Public Use
  Company Number: US-GLAXOSMITHKLINE-US2015050419

PATIENT
  Sex: Female

DRUGS (11)
  1. COMBIVENT [Concomitant]
     Active Substance: ALBUTEROL SULFATE\IPRATROPIUM BROMIDE
  2. VITAMIN D3 [Concomitant]
     Active Substance: CHOLECALCIFEROL
  3. ESTRADIOL. [Concomitant]
     Active Substance: ESTRADIOL
  4. MICARDIS [Concomitant]
     Active Substance: TELMISARTAN
  5. XARELTO [Concomitant]
     Active Substance: RIVAROXABAN
  6. VITAMIN C [Concomitant]
     Active Substance: ASCORBIC ACID
  7. ADVAIR DISKUS [Suspect]
     Active Substance: FLUTICASONE PROPIONATE\SALMETEROL XINAFOATE
     Indication: PRODUCT USED FOR UNKNOWN INDICATION
     Dosage: 250/50
     Route: 055
  8. L-ARGININE [Concomitant]
     Active Substance: ARGININE
  9. SINGULAIR [Concomitant]
     Active Substance: MONTELUKAST SODIUM
  10. ZYRTEC [Concomitant]
     Active Substance: CETIRIZINE HYDROCHLORIDE
  11. MULTAQ [Concomitant]
     Active Substance: DRONEDARONE

REACTIONS (6)
  - Muscle rupture [Unknown]
  - Musculoskeletal pain [Recovered/Resolved]
  - Emergency care examination [Recovered/Resolved]
  - Joint dislocation [Recovered/Resolved]
  - Shoulder arthroplasty [Recovered/Resolved]
  - Physiotherapy [Recovered/Resolved]

NARRATIVE: CASE EVENT DATE: 2013
